FAERS Safety Report 9034676 (Version 1)
Quarter: 2013Q1

REPORT INFORMATION
  Report Type: Spontaneous
  Country: US (occurrence: None)
  Receive Date: 20130116
  Receipt Date: 20130116
  Transmission Date: 20140127
  Serious: Yes (Other)
  Sender: FDA-Public Use
  Company Number: None

PATIENT
  Age: 47 Year
  Sex: Female
  Weight: 86.18 kg

DRUGS (3)
  1. VENLAFAXINE [Suspect]
     Indication: DEPRESSION
     Route: 048
     Dates: start: 20130101, end: 20130106
  2. VENLAFAXINE [Suspect]
     Indication: GENERALISED ANXIETY DISORDER
     Route: 048
     Dates: start: 20130101, end: 20130106
  3. VENLAFAXINE [Suspect]
     Route: 048
     Dates: start: 20130101, end: 20130106

REACTIONS (7)
  - Drug ineffective [None]
  - Product quality issue [None]
  - Product substitution issue [None]
  - Crying [None]
  - Depressed mood [None]
  - Feeling abnormal [None]
  - Circumstance or information capable of leading to medication error [None]
